FAERS Safety Report 9506469 (Version 2)
Quarter: 2013Q3

REPORT INFORMATION
  Report Type: Report from Study
  Country: AU (occurrence: AU)
  Receive Date: 20130906
  Receipt Date: 20130912
  Transmission Date: 20140515
  Serious: Yes (Hospitalization, Other)
  Sender: FDA-Public Use
  Company Number: PHHY2013AU095677

PATIENT
  Sex: Male

DRUGS (4)
  1. SIMULECT [Suspect]
     Indication: IMMUNOSUPPRESSION
     Dosage: UNK UKN, UNK
  2. TACROLIMUS [Concomitant]
     Indication: IMMUNOSUPPRESSION
     Dosage: UNK UKN, UNK
  3. MYCOPHENOLATE [Concomitant]
     Indication: IMMUNOSUPPRESSION
     Dosage: UNK UKN, UNK
  4. METHYLPREDNISOLONE [Concomitant]
     Indication: IMMUNOSUPPRESSION
     Dosage: UNK UKN, UNK

REACTIONS (7)
  - Anti-glomerular basement membrane antibody positive [Unknown]
  - Disease recurrence [Unknown]
  - Blood creatinine increased [Recovering/Resolving]
  - Renal tubular disorder [Unknown]
  - Capillaritis [Unknown]
  - Haematuria [Recovered/Resolved]
  - Pyrexia [Unknown]
